FAERS Safety Report 17940923 (Version 1)
Quarter: 2020Q2

REPORT INFORMATION
  Report Type: Spontaneous
  Country: US (occurrence: US)
  Receive Date: 20200624
  Receipt Date: 20200624
  Transmission Date: 20200714
  Serious: Yes (Disabling)
  Sender: FDA-Public Use
  Company Number: None

PATIENT
  Age: 34 Year
  Sex: Female
  Weight: 54 kg

DRUGS (1)
  1. SENSODYNE REPAIR AND PROTECT [Suspect]
     Active Substance: STANNOUS FLUORIDE
     Indication: HYPERAESTHESIA TEETH
     Route: 048
     Dates: start: 20200120, end: 20200620

REACTIONS (4)
  - Angular cheilitis [None]
  - Skin graft [None]
  - Tongue haemorrhage [None]
  - Gingival bleeding [None]

NARRATIVE: CASE EVENT DATE: 20200127
